FAERS Safety Report 5661629-6 (Version None)
Quarter: 2008Q1

REPORT INFORMATION
  Report Type: 
  Country: None (occurrence: None)
  Receive Date: 20080312
  Receipt Date: 20080228
  Transmission Date: 20080703
  Serious: Yes (Hospitalization, Other)
  Sender: FDA-Public Use
  Company Number: US-AMGEN-QUU267588

PATIENT
  Sex: Male

DRUGS (1)
  1. ENBREL [Suspect]
     Indication: PSORIATIC ARTHROPATHY
     Route: 058
     Dates: start: 20070327

REACTIONS (8)
  - BLOOD DISORDER [None]
  - COUGH [None]
  - DYSPNOEA [None]
  - LARYNGITIS [None]
  - NASOPHARYNGITIS [None]
  - PNEUMONIA [None]
  - PULMONARY EMBOLISM [None]
  - RESPIRATORY TRACT CONGESTION [None]
